FAERS Safety Report 7953640-7 (Version None)
Quarter: 2011Q4

REPORT INFORMATION
  Report Type: 
  Country: None (occurrence: None)
  Receive Date: 20111202
  Receipt Date: 20111118
  Transmission Date: 20120403
  Serious: Yes (Other)
  Sender: FDA-Public Use
  Company Number: JP-ELI_LILLY_AND_COMPANY-JP201109001525

PATIENT
  Age: 59 Year
  Sex: Female

DRUGS (6)
  1. TRICOR [Concomitant]
     Indication: HYPERLIPIDAEMIA
     Dosage: 200 MG, QD
     Route: 048
  2. BYETTA [Suspect]
     Dosage: 10 UG, BID
     Route: 058
     Dates: start: 20110501, end: 20110810
  3. BYETTA [Suspect]
     Indication: TYPE 2 DIABETES MELLITUS
     Dosage: 5 UG, BID
     Route: 058
     Dates: start: 20110413, end: 20110501
  4. METFORMIN HCL [Concomitant]
     Indication: TYPE 2 DIABETES MELLITUS
     Dosage: 1500 MG, QD
     Route: 048
  5. GLIMICRON [Concomitant]
     Indication: TYPE 2 DIABETES MELLITUS
     Dosage: 40 MG, QD
     Route: 048
  6. ALENDRONATE SODIUM [Concomitant]
     Dosage: 35 MG, WEEKLY (1/W)
     Route: 048

REACTIONS (1)
  - PANCREATITIS [None]
